FAERS Safety Report 22000860 (Version 1)
Quarter: 2023Q1

REPORT INFORMATION
  Report Type: Spontaneous
  Country: US (occurrence: US)
  Receive Date: 20230216
  Receipt Date: 20230216
  Transmission Date: 20230417
  Serious: No
  Sender: FDA-Public Use
  Company Number: US-BRISTOL-MYERS SQUIBB COMPANY-2023-021179

PATIENT
  Age: 59 Year
  Sex: Female

DRUGS (2)
  1. AZACITIDINE [Suspect]
     Active Substance: AZACITIDINE
     Indication: Acute myeloid leukaemia
     Dosage: DOSE : 300MG AND 200MG;     FREQ : ^DAYS 1-14^ FULL CYCLE LENGTH IS NOT STATED
     Dates: start: 20220707
  2. AZACITIDINE [Suspect]
     Active Substance: AZACITIDINE
     Dosage: DOSE : 300MG AND 200MG;     FREQ : ^DAYS 1-14^ FULL CYCLE LENGTH IS NOT STATED
     Dates: start: 20220707

REACTIONS (1)
  - Gastrointestinal disorder [Unknown]

NARRATIVE: CASE EVENT DATE: 20220908
